FAERS Safety Report 21155438 (Version 1)
Quarter: 2022Q3

REPORT INFORMATION
  Report Type: Spontaneous
  Country: US (occurrence: US)
  Receive Date: 20220801
  Receipt Date: 20220801
  Transmission Date: 20221027
  Serious: Yes (Hospitalization, Other)
  Sender: FDA-Public Use
  Company Number: US-Indicus Pharma-000849

PATIENT
  Age: 73 Year
  Sex: Male

DRUGS (5)
  1. ACETAZOLAMIDE [Suspect]
     Active Substance: ACETAZOLAMIDE
     Indication: Open angle glaucoma
     Route: 048
  2. LATANOPROST [Concomitant]
     Active Substance: LATANOPROST
     Indication: Open angle glaucoma
     Dosage: EVERY NIGHT AT BEDTIME IN BOTH EYES
  3. DORZOLAMIDE HYDROCHLORIDE\TIMOLOL MALEATE [Concomitant]
     Active Substance: DORZOLAMIDE HYDROCHLORIDE\TIMOLOL MALEATE
     Indication: Open angle glaucoma
     Dosage: TWO TIMES IN A DAY, BOTH EYES
  4. BRIMONIDINE [Concomitant]
     Active Substance: BRIMONIDINE TARTRATE
     Indication: Open angle glaucoma
     Dosage: 3 TIMES A DAY IN BOTH EYES
  5. PRESERVISION LUTEIN EYE VITA.+MIN.S [Concomitant]
     Indication: Open angle glaucoma
     Dosage: TWO TIMES IN A DAY

REACTIONS (5)
  - Acute kidney injury [Recovered/Resolved]
  - Gastroenteritis [Unknown]
  - Metabolic acidosis [Recovered/Resolved]
  - Respiratory acidosis [Recovered/Resolved]
  - Dehydration [Unknown]
